FAERS Safety Report 4607776-9 (Version None)
Quarter: 2005Q1

REPORT INFORMATION
  Report Type: 
  Country: None (occurrence: None)
  Receive Date: 20050314
  Receipt Date: 20050307
  Transmission Date: 20050727
  Serious: Yes (Hospitalization)
  Sender: FDA-Public Use
  Company Number: JP-GLAXOSMITHKLINE-B0374093A

PATIENT
  Age: 33 Year
  Sex: Female

DRUGS (11)
  1. FLOLAN [Suspect]
     Indication: PULMONARY HYPERTENSION
     Route: 042
     Dates: start: 20021011
  2. WARFARIN SODIUM [Suspect]
     Route: 048
  3. FUROSEMIDE [Concomitant]
     Route: 048
  4. SPIRONOLACTONE [Concomitant]
     Route: 048
  5. NIFEDIPINE [Concomitant]
     Route: 048
  6. MEXITIL [Concomitant]
     Route: 048
  7. LANIRAPID [Concomitant]
     Route: 048
  8. VIAGRA [Concomitant]
     Route: 048
  9. LEVOTHYROXINE SODIUM [Concomitant]
     Route: 048
     Dates: end: 20040828
  10. PREDONINE [Concomitant]
     Route: 048
     Dates: end: 20040906
  11. COUGH MEDICINE [Concomitant]

REACTIONS (4)
  - CARDIAC FAILURE [None]
  - CHEST DISCOMFORT [None]
  - HAEMOPTYSIS [None]
  - TACHYCARDIA [None]
